FAERS Safety Report 6829673-0 (Version None)
Quarter: 2010Q3

REPORT INFORMATION
  Report Type: 
  Country: None (occurrence: None)
  Receive Date: 20100709
  Receipt Date: 20070503
  Transmission Date: 20110219
  Serious: No
  Sender: FDA-Public Use
  Company Number: US-PFIZER INC-2007018949

PATIENT
  Sex: Female
  Weight: 65.77 kg

DRUGS (2)
  1. CHANTIX [Suspect]
     Indication: SMOKING CESSATION THERAPY
     Dates: start: 20070224
  2. SYNTHROID [Concomitant]

REACTIONS (6)
  - ABNORMAL DREAMS [None]
  - AGITATION [None]
  - INSOMNIA [None]
  - POOR QUALITY SLEEP [None]
  - THINKING ABNORMAL [None]
  - VIRAL INFECTION [None]
